FAERS Safety Report 11428050 (Version 1)
Quarter: 2015Q3

REPORT INFORMATION
  Report Type: Spontaneous
  Country: US (occurrence: US)
  Receive Date: 20150828
  Receipt Date: 20150828
  Transmission Date: 20151125
  Serious: Yes (Hospitalization, Other)
  Sender: FDA-Public Use
  Company Number: US-WATSON-2015-18061

PATIENT
  Age: 15 Year
  Sex: Male
  Weight: 56 kg

DRUGS (2)
  1. NAPROXEN SODIUM (WATSON LABORATORIES) [Suspect]
     Active Substance: NAPROXEN SODIUM
     Indication: PRODUCT USED FOR UNKNOWN INDICATION
     Dosage: 33000 MG, SINGLE
     Route: 048
  2. IBUPROFEN (WATSON LABORATORIES) [Suspect]
     Active Substance: IBUPROFEN
     Indication: PRODUCT USED FOR UNKNOWN INDICATION
     Dosage: 10000 MG, SINGLE
     Route: 048

REACTIONS (6)
  - Adrenal insufficiency [Recovered/Resolved]
  - Suicide attempt [Recovered/Resolved]
  - Hypovolaemic shock [None]
  - Metabolic acidosis [Recovered/Resolved]
  - Delirium [None]
  - Intentional overdose [Recovered/Resolved]
